FAERS Safety Report 9625703 (Version 1)
Quarter: 2013Q4

REPORT INFORMATION
  Report Type: Spontaneous
  Country: FR (occurrence: FR)
  Receive Date: 20131016
  Receipt Date: 20131016
  Transmission Date: 20140711
  Serious: Yes (Other)
  Sender: FDA-Public Use
  Company Number: FR-JNJFOC-20131003710

PATIENT
  Age: 15 Year
  Sex: Female

DRUGS (5)
  1. RISPERDALORO [Suspect]
     Indication: PSYCHOTIC DISORDER
     Route: 048
     Dates: start: 20120104, end: 20120119
  2. DAFALGAN [Suspect]
     Indication: PRODUCT USED FOR UNKNOWN INDICATION
     Route: 048
     Dates: start: 20120109, end: 20120119
  3. TERCIAN [Concomitant]
     Indication: REFUSAL OF TREATMENT BY PATIENT
     Route: 048
     Dates: start: 20120104, end: 20120119
  4. THERALENE [Concomitant]
     Indication: INSOMNIA
     Dosage: (DRUNKABLE SOLUTION IN DROPS, ORAL) 4% 10 DROPS
     Route: 048
     Dates: start: 20111216, end: 20120119
  5. LEPTICUR [Concomitant]
     Indication: IMPATIENCE
     Route: 048
     Dates: start: 20111216, end: 20120119

REACTIONS (3)
  - Hepatocellular injury [Recovered/Resolved]
  - Cholestasis [Recovered/Resolved]
  - Jaundice [Recovered/Resolved]
